FAERS Safety Report 14510651 (Version 1)
Quarter: 2018Q1

REPORT INFORMATION
  Report Type: Spontaneous
  Country: US (occurrence: US)
  Receive Date: 20180208
  Receipt Date: 20180208
  Transmission Date: 20180509
  Serious: Yes (Hospitalization, Disabling)
  Sender: FDA-Public Use
  Company Number: None

PATIENT
  Age: 70 Year
  Sex: Male
  Weight: 96 kg

DRUGS (2)
  1. HALOPERIDOL. [Suspect]
     Active Substance: HALOPERIDOL
     Indication: SCHIZOAFFECTIVE DISORDER
     Route: 030
     Dates: start: 20151114, end: 20151114
  2. LORAZEPAM. [Suspect]
     Active Substance: LORAZEPAM
     Route: 042
     Dates: start: 20151114, end: 20151114

REACTIONS (5)
  - Dystonia [None]
  - Delirium [None]
  - Confusional state [None]
  - Muscle rigidity [None]
  - Therapy cessation [None]

NARRATIVE: CASE EVENT DATE: 20151114
